FAERS Safety Report 13920513 (Version 1)
Quarter: 2017Q3

REPORT INFORMATION
  Report Type: Spontaneous
  Country: US (occurrence: None)
  Receive Date: 20170829
  Receipt Date: 20170829
  Transmission Date: 20171127
  Serious: Yes (Hospitalization)
  Sender: FDA-Public Use
  Company Number: None

PATIENT
  Age: 68 Year
  Sex: Male
  Weight: 63.28 kg

DRUGS (2)
  1. WARFARIN [Suspect]
     Active Substance: WARFARIN
     Indication: ATRIAL FIBRILLATION
     Dates: start: 20111201
  2. WARFARIN [Suspect]
     Active Substance: WARFARIN
     Indication: MITRAL VALVE INCOMPETENCE
     Dates: start: 20111201

REACTIONS (6)
  - Dizziness [None]
  - Gastric haemorrhage [None]
  - Fall [None]
  - Haemoglobin decreased [None]
  - International normalised ratio increased [None]
  - Clostridium difficile infection [None]

NARRATIVE: CASE EVENT DATE: 20170719
